FAERS Safety Report 7630016-3 (Version None)
Quarter: 2011Q3

REPORT INFORMATION
  Report Type: 
  Country: None (occurrence: None)
  Receive Date: 20110722
  Receipt Date: 20110715
  Transmission Date: 20111222
  Serious: Yes (Hospitalization)
  Sender: FDA-Public Use
  Company Number: TR-US-EMD SERONO, INC.-7071127

PATIENT
  Sex: Female
  Weight: 48 kg

DRUGS (6)
  1. IBRUPROFEN [Concomitant]
     Indication: ARTHRALGIA
     Route: 048
     Dates: start: 20110707, end: 20110711
  2. REBIF [Suspect]
     Indication: RELAPSING-REMITTING MULTIPLE SCLEROSIS
     Route: 058
     Dates: start: 20110707, end: 20110711
  3. BENEXOL [Concomitant]
     Indication: VITAMIN B12 DEFICIENCY
     Route: 048
     Dates: start: 20110601, end: 20110711
  4. TOLTERODINE TARTRATE [Concomitant]
     Indication: URINARY TRACT INFECTION
     Route: 048
     Dates: end: 20110711
  5. CORTISONE ACETATE [Suspect]
     Indication: PRODUCT USED FOR UNKNOWN INDICATION
  6. LANSOR [Concomitant]
     Indication: GASTRITIS
     Route: 048
     Dates: start: 20110601, end: 20110711

REACTIONS (3)
  - MULTIPLE SCLEROSIS [None]
  - MAJOR DEPRESSION [None]
  - PSYCHOTIC DISORDER [None]
